FAERS Safety Report 6724254-1 (Version None)
Quarter: 2010Q2

REPORT INFORMATION
  Report Type: 
  Country: None (occurrence: None)
  Receive Date: 20100513
  Receipt Date: 20100510
  Transmission Date: 20101027
  Serious: Yes (Hospitalization, Other)
  Sender: FDA-Public Use
  Company Number: US-ELI_LILLY_AND_COMPANY-US201003006623

PATIENT
  Sex: Female

DRUGS (3)
  1. HUMULIN N [Suspect]
     Indication: DIABETES MELLITUS
     Dates: start: 19900101, end: 20100101
  2. HUMULIN R [Suspect]
     Indication: DIABETES MELLITUS
     Dosage: 200 U, UNK
     Dates: start: 19900101
  3. LANTUS [Concomitant]
     Dosage: UNK, UNK
     Dates: start: 20100101

REACTIONS (5)
  - BLOOD GLUCOSE DECREASED [None]
  - BLOOD GLUCOSE INCREASED [None]
  - HOSPITALISATION [None]
  - KNEE ARTHROPLASTY [None]
  - SINGLE FUNCTIONAL KIDNEY [None]
